FAERS Safety Report 23487054 (Version 3)
Quarter: 2024Q1

REPORT INFORMATION
  Report Type: Spontaneous
  Country: IT (occurrence: IT)
  Receive Date: 20240206
  Receipt Date: 20240304
  Transmission Date: 20240410
  Serious: Yes (Death, Other)
  Sender: FDA-Public Use
  Company Number: IT-GILEAD-2024-0660970

PATIENT
  Sex: Male
  Weight: 75 kg

DRUGS (2)
  1. YESCARTA [Suspect]
     Active Substance: AXICABTAGENE CILOLEUCEL
     Indication: B-cell lymphoma
     Dosage: UNK
     Route: 042
     Dates: start: 20230626
  2. POSACONAZOLO ACCORD [Concomitant]
     Dosage: UNK
     Dates: start: 20230701

REACTIONS (4)
  - Coma [Fatal]
  - Immune effector cell-associated neurotoxicity syndrome [Fatal]
  - Seizure [Fatal]
  - Pyrexia [Unknown]
